FAERS Safety Report 12861629 (Version 2)
Quarter: 2016Q4

REPORT INFORMATION
  Report Type: Spontaneous
  Country: US (occurrence: US)
  Receive Date: 20161019
  Receipt Date: 20161025
  Transmission Date: 20170207
  Serious: No
  Sender: FDA-Public Use
  Company Number: US-PFIZER INC-2016484128

PATIENT
  Sex: Female

DRUGS (1)
  1. LYRICA [Suspect]
     Active Substance: PREGABALIN
     Dosage: 75 MG, 2X/DAY

REACTIONS (8)
  - Somnolence [Unknown]
  - Dry mouth [Unknown]
  - Balance disorder [Unknown]
  - Drug effect incomplete [Unknown]
  - Euphoric mood [Unknown]
  - Fatigue [Unknown]
  - Inappropriate schedule of drug administration [Unknown]
  - Confusional state [Unknown]
